FAERS Safety Report 12760362 (Version 2)
Quarter: 2016Q3

REPORT INFORMATION
  Report Type: Spontaneous
  Country: GB (occurrence: GB)
  Receive Date: 20160919
  Receipt Date: 20160927
  Transmission Date: 20161109
  Serious: Yes (Hospitalization, Other)
  Sender: FDA-Public Use
  Company Number: GB-009507513-1609GBR004458

PATIENT
  Age: 77 Year
  Sex: Male
  Weight: 71 kg

DRUGS (31)
  1. FORTISIP [Concomitant]
     Active Substance: CARBOHYDRATES\FATTY ACIDS\MINERALS\PROTEIN\VITAMINS
     Indication: WEIGHT DECREASED
     Dosage: UNK
     Route: 065
  2. DARATUMUMAB [Suspect]
     Active Substance: DARATUMUMAB
     Indication: PLASMA CELL MYELOMA
     Dosage: 1100 MG 1 IN 2 WK
     Route: 041
     Dates: start: 20151222
  3. REVLIMID [Suspect]
     Active Substance: LENALIDOMIDE
     Dosage: 25MG, 21 IN 28 D
     Route: 048
     Dates: end: 20160403
  4. ACYCLOVIR. [Concomitant]
     Active Substance: ACYCLOVIR
     Indication: ANTIVIRAL PROPHYLAXIS
     Dosage: 800 MILLIGRAM (400MG, 2 IN 1 D)
     Route: 048
     Dates: start: 20151218
  5. DALTEPARIN SODIUM [Concomitant]
     Active Substance: DALTEPARIN SODIUM
     Indication: THROMBOSIS PROPHYLAXIS
     Dosage: 15 MG, 1 IN 1 D
     Route: 058
     Dates: start: 20151218
  6. MINERAL OIL (+) PETROLATUM, WHITE [Concomitant]
     Active Substance: MINERAL OIL\PETROLATUM
     Indication: DRY SKIN
     Dosage: UNK, 1 IN 1 D
     Route: 061
     Dates: start: 20160104
  7. SENNOSIDES. [Concomitant]
     Active Substance: SENNOSIDES
     Indication: CONSTIPATION
     Dosage: 15 MG, UNK
     Route: 048
     Dates: start: 201511
  8. DARATUMUMAB [Suspect]
     Active Substance: DARATUMUMAB
     Dosage: 1100 MG, 1 IN 2 WK
     Route: 041
     Dates: start: 20160119, end: 20160329
  9. REVLIMID [Suspect]
     Active Substance: LENALIDOMIDE
     Indication: PLASMA CELL MYELOMA
     Dosage: 25MG, 21 IN 28 D
     Route: 048
     Dates: start: 20151222
  10. REVLIMID [Suspect]
     Active Substance: LENALIDOMIDE
     Dosage: 25MG, 21 IN 28 D
     Route: 048
     Dates: start: 20160216
  11. FUROSEMIDE. [Concomitant]
     Active Substance: FUROSEMIDE
     Indication: FLUID RETENTION
     Dosage: 20 MG, 1 IN 1 D
     Route: 048
     Dates: start: 20160104
  12. LACTULOSE. [Concomitant]
     Active Substance: LACTULOSE
     Indication: CONSTIPATION
     Dosage: 40 ML
     Route: 048
     Dates: start: 201511
  13. METOCLOPRAMIDE. [Concomitant]
     Active Substance: METOCLOPRAMIDE
     Indication: PROPHYLAXIS OF NAUSEA AND VOMITING
     Dosage: UNK
     Route: 065
  14. HALOPERIDOL. [Concomitant]
     Active Substance: HALOPERIDOL
     Indication: CONFUSIONAL STATE
     Dosage: 0.5 MG, BID
     Route: 048
     Dates: start: 20151223
  15. ACETAMINOPHEN. [Concomitant]
     Active Substance: ACETAMINOPHEN
     Indication: PAIN
     Dosage: 1 G, 4 IN 1 D
     Route: 048
     Dates: start: 20151218
  16. ALBUTEROL. [Concomitant]
     Active Substance: ALBUTEROL
     Dosage: 1 MILLIGRAM (100 MCG)
     Route: 055
     Dates: start: 20151229
  17. DEXAMETHASONE. [Suspect]
     Active Substance: DEXAMETHASONE
     Indication: PLASMA CELL MYELOMA
     Dosage: 20 MG, 1 IN 1 D
     Route: 041
     Dates: start: 20151222
  18. SULFAMETHOXAZOLE (+) TRIMETHOPRIM [Concomitant]
     Active Substance: SULFAMETHOXAZOLE\TRIMETHOPRIM
     Indication: ANTIFUNGAL PROPHYLAXIS
     Dosage: 960 MG, 3 IN 1 WEEK
     Route: 048
     Dates: start: 20160112
  19. FLUCONAZOLE. [Concomitant]
     Active Substance: FLUCONAZOLE
     Indication: ANTIFUNGAL PROPHYLAXIS
     Dosage: 50 MG, 1 IN 1 D
     Route: 048
     Dates: start: 20151218
  20. ORAMORPH [Concomitant]
     Active Substance: MORPHINE SULFATE
     Indication: PAIN
     Dosage: 10 MG/5 ML
     Route: 048
     Dates: start: 201512
  21. ALBUTEROL. [Concomitant]
     Active Substance: ALBUTEROL
     Dosage: 2.5-5MG (2.5 MG)
     Route: 055
     Dates: start: 20160104
  22. DEXAMETHASONE. [Suspect]
     Active Substance: DEXAMETHASONE
     Dosage: 20 MG, 1 IN 1 D
     Route: 041
     Dates: start: 20160216, end: 20160329
  23. ADCAL-D3 [Concomitant]
     Active Substance: CALCIUM CARBONATE\CHOLECALCIFEROL
     Indication: PROPHYLAXIS
     Dosage: UNKN (2 IN 1 D)
     Route: 048
     Dates: start: 201511
  24. FORTISIP [Concomitant]
     Active Substance: CARBOHYDRATES\FATTY ACIDS\MINERALS\PROTEIN\VITAMINS
     Indication: DECREASED APPETITE
     Dosage: 200 ML, 3 IN 1 D
     Route: 048
     Dates: start: 20160119
  25. HYDROCORTISONE. [Concomitant]
     Active Substance: HYDROCORTISONE
     Indication: HYPERSENSITIVITY
     Dosage: UNK, 1 IN 1 D
     Route: 061
     Dates: start: 20160106
  26. METOCLOPRAMIDE. [Concomitant]
     Active Substance: METOCLOPRAMIDE
     Indication: PROPHYLAXIS OF NAUSEA AND VOMITING
     Dosage: 10 MG, 3 IN 1 D
     Route: 048
     Dates: start: 20151218
  27. MOVICOL [Concomitant]
     Active Substance: POLYETHYLENE GLYCOL 3350\POTASSIUM CHLORIDE\SODIUM BICARBONATE\SODIUM CHLORIDE
     Indication: CONSTIPATION
     Dosage: UNK
     Route: 048
     Dates: start: 20151218
  28. OMEPRAZOLE. [Concomitant]
     Active Substance: OMEPRAZOLE
     Indication: PROPHYLAXIS
     Dosage: (40 MG, 1 IN 1 D) ALSO REPORTED 4 GRAM
     Route: 048
     Dates: start: 20151218
  29. BISACODYL. [Concomitant]
     Active Substance: BISACODYL
     Indication: CONSTIPATION
     Dosage: 5 MG, 1 IN 1 D
     Route: 048
     Dates: start: 20160115
  30. MORPHINE [Concomitant]
     Active Substance: MORPHINE
     Indication: BACK PAIN
     Dosage: 30 MG, 2 IN 1 D
     Route: 048
     Dates: start: 20160119
  31. ALBUTEROL. [Concomitant]
     Active Substance: ALBUTEROL
     Indication: WHEEZING
     Dosage: 40 MILLIGRAM (2.5 MG)
     Route: 055
     Dates: start: 20151229

REACTIONS (1)
  - Febrile neutropenia [Recovered/Resolved]

NARRATIVE: CASE EVENT DATE: 20160404
